FAERS Safety Report 8611752-9 (Version None)
Quarter: 2012Q3

REPORT INFORMATION
  Report Type: 
  Country: None (occurrence: None)
  Receive Date: 20120822
  Receipt Date: 20120816
  Transmission Date: 20120928
  Serious: Yes (Other)
  Sender: FDA-Public Use
  Company Number: CN-ROCHE-1103641

PATIENT
  Sex: Female
  Weight: 48 kg

DRUGS (6)
  1. LEVOFLOXACIN [Suspect]
     Indication: ANTIBIOTIC THERAPY
     Route: 041
     Dates: start: 20091201, end: 20091203
  2. FRUCTOSE DIPHOSPHATE SODIUM [Concomitant]
     Indication: NUTRITIONAL SUPPORT
     Route: 041
     Dates: start: 20091201, end: 20091206
  3. TANREQING INJECTION [Concomitant]
     Indication: PYREXIA
     Route: 041
     Dates: start: 20091201, end: 20091204
  4. MOXIFLOXACIN HYDROCHLORIDE [Concomitant]
     Indication: ANTIBIOTIC THERAPY
     Route: 041
     Dates: start: 20091201, end: 20091201
  5. TANREQING INJECTION [Concomitant]
     Indication: PRODUCTIVE COUGH
  6. TAMIFLU [Suspect]
     Indication: H1N1 INFLUENZA
     Route: 048
     Dates: start: 20091130, end: 20091204

REACTIONS (1)
  - WHITE BLOOD CELL COUNT DECREASED [None]
